FAERS Safety Report 21172838 (Version 1)
Quarter: 2022Q3

REPORT INFORMATION
  Report Type: Other
  Country: US (occurrence: None)
  Receive Date: 20220804
  Receipt Date: 20220804
  Transmission Date: 20221027
  Serious: No
  Sender: FDA-Public Use
  Company Number: US-ROCHE-3152708

PATIENT
  Sex: Female

DRUGS (1)
  1. OCREVUS [Suspect]
     Active Substance: OCRELIZUMAB
     Indication: Relapsing multiple sclerosis
     Dosage: UNKNOWN, DATE OF TREATMENT ON 16/OCT/2019
     Route: 065

REACTIONS (2)
  - COVID-19 [Unknown]
  - Hypotension [Unknown]
